FAERS Safety Report 6045409-8 (Version None)
Quarter: 2009Q1

REPORT INFORMATION
  Report Type: 
  Country: None (occurrence: None)
  Receive Date: 20090121
  Receipt Date: 20081216
  Transmission Date: 20090719
  Serious: Yes (Other)
  Sender: FDA-Public Use
  Company Number: NL-PFIZER INC-2009153932

PATIENT

DRUGS (1)
  1. DOSTINEX [Suspect]
     Dosage: UNK
     Dates: start: 20040101, end: 20080101

REACTIONS (6)
  - ACTIVITIES OF DAILY LIVING IMPAIRED [None]
  - AMNESIA [None]
  - FALL [None]
  - GAIT DISTURBANCE [None]
  - PANIC ATTACK [None]
  - WEIGHT INCREASED [None]
